FAERS Safety Report 15695426 (Version 1)
Quarter: 2018Q4

REPORT INFORMATION
  Report Type: Spontaneous
  Country: US (occurrence: US)
  Receive Date: 20181206
  Receipt Date: 20181206
  Transmission Date: 20190205
  Serious: No
  Sender: FDA-Public Use
  Company Number: US-ENDO PHARMACEUTICALS INC-2018-037586

PATIENT
  Sex: Male
  Weight: 81.63 kg

DRUGS (5)
  1. XIAFLEX [Suspect]
     Active Substance: COLLAGENASE CLOSTRIDIUM HISTOLYTICUM
     Dosage: FOURTH CYCLE; INJECTION ONE
     Route: 026
     Dates: start: 20180130, end: 20180130
  2. XIAFLEX [Suspect]
     Active Substance: COLLAGENASE CLOSTRIDIUM HISTOLYTICUM
     Indication: PEYRONIE^S DISEASE
     Dosage: FOURTH CYCLE; INJECTION TWO
     Route: 026
     Dates: start: 20180202, end: 20180202
  3. XIAFLEX [Suspect]
     Active Substance: COLLAGENASE CLOSTRIDIUM HISTOLYTICUM
     Dosage: CYCLE ONE; INJECTION ONE AND TWO
     Route: 026
     Dates: start: 2017
  4. XIAFLEX [Suspect]
     Active Substance: COLLAGENASE CLOSTRIDIUM HISTOLYTICUM
     Dosage: CYCLE THREE; INJECTION ONE AND TWO
     Route: 026
     Dates: start: 2017
  5. XIAFLEX [Suspect]
     Active Substance: COLLAGENASE CLOSTRIDIUM HISTOLYTICUM
     Dosage: CYCLE TWO; INJECTION ONE AND TWO
     Route: 026
     Dates: start: 2017

REACTIONS (1)
  - Drug ineffective [Unknown]
